FAERS Safety Report 16719765 (Version 5)
Quarter: 2020Q1

REPORT INFORMATION
  Report Type: Spontaneous
  Country: US (occurrence: US)
  Receive Date: 20190820
  Receipt Date: 20200212
  Transmission Date: 20200409
  Serious: Yes (Other)
  Sender: FDA-Public Use
  Company Number: US-PFIZER INC-2019093982

PATIENT
  Age: 69 Year
  Sex: Male
  Weight: 120 kg

DRUGS (5)
  1. LYRICA [Suspect]
     Active Substance: PREGABALIN
     Indication: DIABETES WITH HYPEROSMOLARITY
     Dosage: 300 MG, 2X/DAY (TAKE 1 CAPSULE BY MOUTH 2 TIMES A DAY MAX DAILY AMOUNT: 600 MG)
     Route: 048
     Dates: start: 20190326, end: 2019
  2. LYRICA [Suspect]
     Active Substance: PREGABALIN
     Indication: DIABETES MELLITUS
     Dosage: 300 MG, 2X/DAY (TAKE 1 CAPSULE BY MOUTH 2 TIMES A DAY MAX DAILY AMOUNT: 600 MG)
     Route: 048
     Dates: start: 20190218, end: 2019
  3. LYRICA [Suspect]
     Active Substance: PREGABALIN
     Indication: PSORIATIC ARTHROPATHY
     Dosage: 300 MG, 2X/DAY(TAKE 1 CAPSULE BY MOUTH 2 TIMES A DAY MAX DAILY AMOUNT: 600)
     Route: 048
     Dates: start: 20190702
  4. LYRICA [Suspect]
     Active Substance: PREGABALIN
     Indication: DIABETIC NEUROPATHY
  5. LYRICA [Suspect]
     Active Substance: PREGABALIN
     Indication: FIBROMYALGIA

REACTIONS (5)
  - Burning sensation [Unknown]
  - Withdrawal syndrome [Unknown]
  - Drug dependence [Unknown]
  - Neuropathy peripheral [Unknown]
  - Burning feet syndrome [Unknown]

NARRATIVE: CASE EVENT DATE: 2019
